FAERS Safety Report 12721289 (Version 1)
Quarter: 2016Q3

REPORT INFORMATION
  Report Type: Spontaneous
  Country: JP (occurrence: JP)
  Receive Date: 20160907
  Receipt Date: 20160907
  Transmission Date: 20161109
  Serious: Yes (Other)
  Sender: FDA-Public Use
  Company Number: JP-JNJFOC-20160904583

PATIENT
  Age: 71 Year
  Sex: Male

DRUGS (3)
  1. DOXORUBICIN HYDROCHLORIDE. [Suspect]
     Active Substance: DOXORUBICIN HYDROCHLORIDE
     Indication: SARCOMA
     Dosage: ON DAYS 1-3 EVERY 3 WEEKS
     Route: 065
  2. IFOSFAMIDE. [Suspect]
     Active Substance: IFOSFAMIDE
     Indication: SARCOMA
     Dosage: DOSE: (2.5 G/M2 ON DAYS 1-4) EVERY 3 WEEKS
     Route: 065
  3. PAZOPANIB [Suspect]
     Active Substance: PAZOPANIB
     Indication: SARCOMA
     Dosage: DISCONTINUATION OF THE DRUG FOR ONE WEEK
     Route: 065

REACTIONS (5)
  - Fatigue [Unknown]
  - Product use issue [Unknown]
  - Pulmonary necrosis [Unknown]
  - Neutropenia [Unknown]
  - Off label use [Unknown]
